FAERS Safety Report 9414288 (Version 1)
Quarter: 2013Q3

REPORT INFORMATION
  Report Type: Spontaneous
  Country: US (occurrence: US)
  Receive Date: 20130723
  Receipt Date: 20130723
  Transmission Date: 20140515
  Serious: No
  Sender: FDA-Public Use
  Company Number: US-PFIZER INC-2013213416

PATIENT
  Sex: Female

DRUGS (2)
  1. ADVIL [Suspect]
     Indication: RHINORRHOEA
     Dosage: UNK, SINGLE
     Dates: start: 20130721, end: 20130721
  2. ADVIL [Suspect]
     Indication: ALLERGIC SINUSITIS

REACTIONS (1)
  - Drug ineffective for unapproved indication [Unknown]
